FAERS Safety Report 14118284 (Version 1)
Quarter: 2017Q4

REPORT INFORMATION
  Report Type: Spontaneous
  Country: US (occurrence: US)
  Receive Date: 20171023
  Receipt Date: 20171023
  Transmission Date: 20180321
  Serious: No
  Sender: FDA-Public Use
  Company Number: US-ALLERGAN-1677546US

PATIENT
  Age: 72 Year
  Sex: Male

DRUGS (2)
  1. LINZESS [Suspect]
     Active Substance: LINACLOTIDE
     Dosage: 290 ?G, QHS
  2. LINZESS [Suspect]
     Active Substance: LINACLOTIDE
     Indication: CONSTIPATION
     Dosage: 145 ?G, QHS

REACTIONS (5)
  - Incorrect dose administered [Unknown]
  - Urine flow decreased [Unknown]
  - Drug ineffective [Unknown]
  - Penile swelling [Unknown]
  - Pruritus [Unknown]
